FAERS Safety Report 6530413-3 (Version None)
Quarter: 2010Q1

REPORT INFORMATION
  Report Type: 
  Country: None (occurrence: None)
  Receive Date: 20100106
  Receipt Date: 20100106
  Transmission Date: 20100710
  Serious: No
  Sender: FDA-Public Use
  Company Number: None

PATIENT
  Age: 48 Year
  Sex: Female
  Weight: 77.1115 kg

DRUGS (1)
  1. ZICAM ZINCUM GLUCONICUMZICAM LLC/ MATRIXX INITATIVES 2X [Suspect]
     Indication: NASOPHARYNGITIS
     Dosage: ONE SPRAY IN EACH NOSTRIL ONCE
     Dates: start: 20040214, end: 20040214

REACTIONS (2)
  - ANOSMIA [None]
  - HEADACHE [None]
